FAERS Safety Report 11322378 (Version 1)
Quarter: 2015Q3

REPORT INFORMATION
  Report Type: Spontaneous
  Country: US (occurrence: None)
  Receive Date: 20150728
  Receipt Date: 20150728
  Transmission Date: 20151125
  Serious: Yes (Hospitalization)
  Sender: FDA-Public Use
  Company Number: UCM201507-000508

PATIENT
  Age: 93 Year
  Sex: Female

DRUGS (14)
  1. METRONIDAZOLE. [Concomitant]
     Active Substance: METRONIDAZOLE
  2. ALENDRONATE [Concomitant]
     Active Substance: ALENDRONATE SODIUM
  3. LEVOTHYROXINE. [Concomitant]
     Active Substance: LEVOTHYROXINE
  4. LUBIPROSTONE [Concomitant]
     Active Substance: LUBIPROSTONE
  5. TRIAMTERENE AND HYDROCHLOROTHIAZIDE [Concomitant]
     Active Substance: HYDROCHLOROTHIAZIDE\TRIAMTERENE
  6. LIDOCAINE. [Concomitant]
     Active Substance: LIDOCAINE
  7. TRAMADOL. [Concomitant]
     Active Substance: TRAMADOL
  8. TIZANIDINE (TIZANIDINE) (TIZANIDINE) [Suspect]
     Active Substance: TIZANIDINE
     Indication: BACK INJURY
     Route: 048
  9. DILTIAZEM [Concomitant]
     Active Substance: DILTIAZEM
  10. WARFARIN [Concomitant]
     Active Substance: WARFARIN
  11. SIMVASTATIN. [Concomitant]
     Active Substance: SIMVASTATIN
  12. CHOLESTYRAMINE. [Concomitant]
     Active Substance: CHOLESTYRAMINE
  13. METOPROLOL [Concomitant]
     Active Substance: METOPROLOL
  14. PROMETHAZINE [Concomitant]
     Active Substance: PROMETHAZINE\PROMETHAZINE HYDROCHLORIDE

REACTIONS (3)
  - Hypotension [None]
  - Bradycardia [None]
  - Mental status changes [None]
